FAERS Safety Report 8282941-0 (Version None)
Quarter: 2012Q2

REPORT INFORMATION
  Report Type: 
  Country: None (occurrence: None)
  Receive Date: 20120409
  Receipt Date: 20120330
  Transmission Date: 20120825
  Serious: Yes (Other)
  Sender: FDA-Public Use
  Company Number: 2012031805

PATIENT
  Age: 53 Year
  Sex: Female

DRUGS (1)
  1. HIZENTRA [Suspect]
     Indication: ALPHA-1 ANTI-TRYPSIN DEFICIENCY

REACTIONS (4)
  - DYSPNOEA [None]
  - HYPERVENTILATION [None]
  - MUSCLE SPASMS [None]
  - PARAESTHESIA [None]
